FAERS Safety Report 14231891 (Version 3)
Quarter: 2018Q1

REPORT INFORMATION
  Report Type: Spontaneous
  Country: JP (occurrence: JP)
  Receive Date: 20171128
  Receipt Date: 20180124
  Transmission Date: 20180508
  Serious: Yes (Other)
  Sender: FDA-Public Use
  Company Number: JP-ELI_LILLY_AND_COMPANY-JP201711008683

PATIENT
  Age: 46 Year
  Sex: Male

DRUGS (2)
  1. ERBITUX [Suspect]
     Active Substance: CETUXIMAB
     Indication: HYPOPHARYNGEAL CANCER
     Dosage: UNK UNK, UNKNOWN
     Route: 042
  2. PACLITAXEL. [Concomitant]
     Active Substance: PACLITAXEL
     Indication: HYPOPHARYNGEAL CANCER
     Dosage: UNK, UNKNOWN

REACTIONS (3)
  - Neck pain [Recovered/Resolved]
  - Off label use [Unknown]
  - Pneumatosis [Recovered/Resolved]

NARRATIVE: CASE EVENT DATE: 201711
